FAERS Safety Report 5572923-1 (Version None)
Quarter: 2007Q4

REPORT INFORMATION
  Report Type: 
  Country: None (occurrence: None)
  Receive Date: 20071220
  Receipt Date: 20071220
  Transmission Date: 20080405
  Serious: Yes (Hospitalization)
  Sender: FDA-Public Use
  Company Number: None

PATIENT
  Sex: Male
  Weight: 77.7 kg

DRUGS (6)
  1. TARCEVA [Suspect]
     Indication: PROSTATE CANCER
     Dosage: 150MG QD PO
     Route: 048
     Dates: start: 20070807, end: 20071110
  2. VASOTEC [Concomitant]
  3. METAMUCIL [Concomitant]
  4. ZOCOR [Concomitant]
  5. TERAZOSIN HCL [Concomitant]
  6. OMEPRAZOLE [Concomitant]

REACTIONS (3)
  - DEHYDRATION [None]
  - PNEUMOCYSTIS JIROVECI PNEUMONIA [None]
  - PULMONARY FIBROSIS [None]
